FAERS Safety Report 5702212-3 (Version None)
Quarter: 2008Q2

REPORT INFORMATION
  Report Type: 
  Country: None (occurrence: None)
  Receive Date: 20080411
  Receipt Date: 20080102
  Transmission Date: 20081010
  Serious: No
  Sender: FDA-Public Use
  Company Number: US-ABBOTT-08P-163-0432218-00

PATIENT
  Sex: Female
  Weight: 79.45 kg

DRUGS (2)
  1. DEPAKOTE [Suspect]
     Indication: DEPRESSION
     Route: 048
     Dates: start: 20030101
  2. QUETIAPINE FUMARATE [Concomitant]
     Indication: DEPRESSION
     Dates: end: 20080102

REACTIONS (1)
  - WEIGHT LOSS POOR [None]
